FAERS Safety Report 5975159-5 (Version None)
Quarter: 2008Q4

REPORT INFORMATION
  Report Type: 
  Country: None (occurrence: None)
  Receive Date: 20081202
  Receipt Date: 20080715
  Transmission Date: 20090506
  Serious: No
  Sender: FDA-Public Use
  Company Number: US-ABBOTT-08P-163-0463418-00

PATIENT
  Sex: Female
  Weight: 64.468 kg

DRUGS (6)
  1. LUPRON DEPOT [Suspect]
     Indication: HORMONE LEVEL ABNORMAL
     Route: 030
     Dates: start: 20080314
  2. LUPRON DEPOT [Suspect]
     Indication: BLOOD OESTROGEN INCREASED
  3. LETROZOLE [Suspect]
     Indication: BLOOD OESTROGEN INCREASED
     Route: 048
     Dates: start: 20080317, end: 20080328
  4. LETROZOLE [Suspect]
     Dates: start: 20080401, end: 20080418
  5. LETROZOLE [Suspect]
     Dates: start: 20080527
  6. ZOLEDRONIC ACID [Concomitant]
     Indication: OSTEOPOROSIS
     Route: 042
     Dates: start: 20080301

REACTIONS (9)
  - ABASIA [None]
  - ARTHRALGIA [None]
  - BONE PAIN [None]
  - HAEMORRHAGE [None]
  - HEADACHE [None]
  - MALAISE [None]
  - NAUSEA [None]
  - PAIN IN EXTREMITY [None]
  - VOMITING [None]
